FAERS Safety Report 8827756 (Version 1)
Quarter: 2012Q4

REPORT INFORMATION
  Report Type: 
  Country: CO (occurrence: CO)
  Receive Date: 20121005
  Receipt Date: 20121005
  Transmission Date: 20130627
  Serious: Yes (Other)
  Sender: FDA-Public Use
  Company Number: CO-ABBOTT-12P-036-0990508-00

PATIENT
  Age: 47 Year
  Sex: Female

DRUGS (1)
  1. HUMIRA [Suspect]
     Indication: PSORIASIS
     Route: 058
     Dates: start: 20081127, end: 20120913

REACTIONS (3)
  - Intervertebral disc disorder [Recovering/Resolving]
  - Spinal cord oedema [Recovering/Resolving]
  - Spinal pain [Recovering/Resolving]
